FAERS Safety Report 14056720 (Version 1)
Quarter: 2017Q4

REPORT INFORMATION
  Report Type: Report from Study
  Country: None (occurrence: CA)
  Receive Date: 20171006
  Receipt Date: 20171006
  Transmission Date: 20180321
  Serious: Yes (Hospitalization, Other)
  Sender: FDA-Public Use
  Company Number: CA-ABBVIE-16K-028-1793914-00

PATIENT
  Age: 56 Year
  Sex: Female

DRUGS (2)
  1. HUMIRA [Suspect]
     Active Substance: ADALIMUMAB
     Indication: CROHN^S DISEASE
     Route: 058
     Dates: start: 20100309, end: 201610
  2. METHOTREXATE. [Suspect]
     Active Substance: METHOTREXATE
     Indication: PRODUCT USED FOR UNKNOWN INDICATION
     Route: 065

REACTIONS (14)
  - Crohn^s disease [Unknown]
  - Malaise [Not Recovered/Not Resolved]
  - Finger deformity [Not Recovered/Not Resolved]
  - Arthritis [Unknown]
  - Influenza like illness [Not Recovered/Not Resolved]
  - Pyrexia [Unknown]
  - Musculoskeletal pain [Unknown]
  - Lung infection [Not Recovered/Not Resolved]
  - Blood test abnormal [Unknown]
  - Back pain [Not Recovered/Not Resolved]
  - Frequent bowel movements [Unknown]
  - Pain in extremity [Not Recovered/Not Resolved]
  - Spinal compression fracture [Recovered/Resolved]
  - Nausea [Unknown]

NARRATIVE: CASE EVENT DATE: 201508
